FAERS Safety Report 10609694 (Version 1)
Quarter: 2014Q4

REPORT INFORMATION
  Report Type: Spontaneous
  Country: US (occurrence: US)
  Receive Date: 20141126
  Receipt Date: 20141126
  Transmission Date: 20150529
  Serious: Yes (Other)
  Sender: FDA-Public Use
  Company Number: US-AMGEN-USASL2014090063

PATIENT
  Age: 71 Year
  Sex: Male

DRUGS (3)
  1. COUMADIN [Concomitant]
     Active Substance: WARFARIN SODIUM
     Dosage: UNK
  2. PROCRIT [Suspect]
     Active Substance: ERYTHROPOIETIN
     Indication: HAEMOGLOBIN DECREASED
     Dosage: UNK
     Route: 065
     Dates: start: 200805
  3. SOLIRIS [Suspect]
     Active Substance: ECULIZUMAB
     Indication: PAROXYSMAL NOCTURNAL HAEMOGLOBINURIA
     Dosage: 10 MG/ML, UNK
     Route: 042
     Dates: start: 20080102

REACTIONS (5)
  - Headache [Not Recovered/Not Resolved]
  - Transfusion [Unknown]
  - Medial tibial stress syndrome [Not Recovered/Not Resolved]
  - Tooth extraction [Unknown]
  - Chest pain [Unknown]

NARRATIVE: CASE EVENT DATE: 20110802
